FAERS Safety Report 6605123-4 (Version None)
Quarter: 2010Q1

REPORT INFORMATION
  Report Type: 
  Country: None (occurrence: None)
  Receive Date: 20100226
  Receipt Date: 20100217
  Transmission Date: 20100710
  Serious: Yes (Hospitalization)
  Sender: FDA-Public Use
  Company Number: NL-ELI_LILLY_AND_COMPANY-NL201002005277

PATIENT
  Sex: Female
  Weight: 101 kg

DRUGS (8)
  1. BYETTA [Suspect]
     Indication: DIABETES MELLITUS
     Dosage: 5 UG, 2/D
     Route: 058
     Dates: start: 20091005, end: 20091105
  2. PARIET [Concomitant]
     Indication: GASTROOESOPHAGEAL REFLUX DISEASE
     Dosage: 20 MG, UNKNOWN
  3. CRESTOR [Concomitant]
     Dosage: 20 MG, UNKNOWN
  4. COVERSYL PLUS [Concomitant]
     Dosage: 1 (5/1.25), UNKNOWN
  5. ATENOLOL [Concomitant]
     Dosage: 50 MG, 2/D
  6. GLIBENCLAMIDE [Concomitant]
     Dosage: 5 MG, 2/D
  7. METFORMIN HCL [Concomitant]
     Dosage: 500 MG, 2/D
  8. MARCUMAR [Concomitant]
     Dosage: 1 D/F, UNKNOWN

REACTIONS (4)
  - DRUG INTERACTION [None]
  - HYPOCALCAEMIA [None]
  - HYPOKALAEMIA [None]
  - HYPOMAGNESAEMIA [None]
